FAERS Safety Report 5387420-6 (Version None)
Quarter: 2007Q3

REPORT INFORMATION
  Report Type: 
  Country: None (occurrence: None)
  Receive Date: 20070712
  Receipt Date: 20070630
  Transmission Date: 20080115
  Serious: Yes (Hospitalization)
  Sender: FDA-Public Use
  Company Number: DAV-AE-FUR-07-001

PATIENT
  Age: 18 Year
  Sex: Female

DRUGS (1)
  1. FUROSEMIDE [Suspect]
     Indication: OEDEMA
     Dosage: 120MG DAILY

REACTIONS (18)
  - ALKALOSIS HYPOCHLORAEMIC [None]
  - ALKALOSIS HYPOKALAEMIC [None]
  - BIOPSY KIDNEY ABNORMAL [None]
  - BLOOD PRESSURE DECREASED [None]
  - FACE OEDEMA [None]
  - GLOMERULONEPHRITIS MINIMAL LESION [None]
  - HEART RATE INCREASED [None]
  - HYPERCAPNIA [None]
  - HYPONATRAEMIA [None]
  - HYPOREFLEXIA [None]
  - HYPOVENTILATION [None]
  - HYPOVOLAEMIA [None]
  - LOSS OF CONSCIOUSNESS [None]
  - METABOLIC ALKALOSIS [None]
  - OEDEMA PERIPHERAL [None]
  - PROTEIN URINE PRESENT [None]
  - RESPIRATORY RATE DECREASED [None]
  - SEPSIS [None]
